FAERS Safety Report 9361224 (Version 1)
Quarter: 2013Q2

REPORT INFORMATION
  Report Type: Spontaneous
  Country: CZ (occurrence: CZ)
  Receive Date: 20130621
  Receipt Date: 20130621
  Transmission Date: 20140414
  Serious: Yes (Other)
  Sender: FDA-Public Use
  Company Number: CZ-BRISTOL-MYERS SQUIBB COMPANY-19032176

PATIENT
  Age: 72 Year
  Sex: Male

DRUGS (1)
  1. ERBITUX [Suspect]
     Indication: COLORECTAL CANCER

REACTIONS (1)
  - Gastrointestinal disorder [Recovered/Resolved]
